FAERS Safety Report 14075909 (Version 1)
Quarter: 2017Q4

REPORT INFORMATION
  Report Type: Report from Study
  Country: GB (occurrence: GB)
  Receive Date: 20171011
  Receipt Date: 20171011
  Transmission Date: 20180321
  Serious: Yes (Hospitalization)
  Sender: FDA-Public Use
  Company Number: GB-UCBSA-2017040363

PATIENT
  Sex: Female

DRUGS (1)
  1. LEVETIRACETAM. [Suspect]
     Active Substance: LEVETIRACETAM
     Indication: PRODUCT USED FOR UNKNOWN INDICATION
     Dosage: 1500 MG, 2X/DAY (BID) (MORNING AND NIGHT)

REACTIONS (6)
  - Hospitalisation [Unknown]
  - Irritability [Unknown]
  - Insomnia [Unknown]
  - Crying [Unknown]
  - Feeling hot [Unknown]
  - Mood altered [Unknown]
